FAERS Safety Report 4971186-5 (Version None)
Quarter: 2006Q1

REPORT INFORMATION
  Report Type: 
  Country: None (occurrence: None)
  Receive Date: 20060216
  Receipt Date: 20050113
  Transmission Date: 20060701
  Serious: No
  Sender: FDA-Public Use
  Company Number: 2003IM000778

PATIENT
  Age: 62 Year
  Sex: Male
  Weight: 81.6475 kg

DRUGS (7)
  1. ACTIMMUNE [Suspect]
     Indication: IDIOPATHIC PULMONARY FIBROSIS
     Dosage: 200 UG, TIW, SUBCUTANEOUS
     Route: 058
     Dates: start: 20020801
  2. LASIX [Concomitant]
  3. PREVACID [Concomitant]
  4. PREDNISONE TAB [Concomitant]
  5. POTASSIUM [Concomitant]
  6. QUININE SULFATE [Concomitant]
  7. TYELENOL [Concomitant]

REACTIONS (2)
  - BLOOD CREATININE INCREASED [None]
  - INFLUENZA LIKE ILLNESS [None]
